FAERS Safety Report 12302980 (Version 1)
Quarter: 2016Q2

REPORT INFORMATION
  Report Type: Spontaneous
  Country: US (occurrence: US)
  Receive Date: 20160426
  Receipt Date: 20160426
  Transmission Date: 20160815
  Serious: No
  Sender: FDA-Public Use
  Company Number: US-BIOGEN-2016BI00224857

PATIENT

DRUGS (1)
  1. AVONEX [Suspect]
     Active Substance: INTERFERON BETA-1A
     Indication: MULTIPLE SCLEROSIS

REACTIONS (6)
  - Peroneal nerve palsy [Unknown]
  - Therapy change [Unknown]
  - Influenza like illness [Unknown]
  - Paraesthesia [Unknown]
  - Lethargy [Unknown]
  - Abdominal discomfort [Unknown]
